FAERS Safety Report 12744293 (Version 1)
Quarter: 2016Q3

REPORT INFORMATION
  Report Type: Spontaneous
  Country: US (occurrence: US)
  Receive Date: 20160914
  Receipt Date: 20160914
  Transmission Date: 20161109
  Serious: Yes (Hospitalization)
  Sender: FDA-Public Use
  Company Number: US-DSJP-DSU-2016-121299

PATIENT

DRUGS (8)
  1. BENICAR HCT [Suspect]
     Active Substance: HYDROCHLOROTHIAZIDE\OLMESARTAN MEDOXOMIL
     Dosage: 20MG/12.5 MG, UNK
  2. LASIX [Concomitant]
     Active Substance: FUROSEMIDE
     Indication: BLOOD PRESSURE MANAGEMENT
     Dosage: 10 MG, QD
  3. VITAMIN D                          /00107901/ [Concomitant]
     Active Substance: ERGOCALCIFEROL
     Indication: VITAMIN D DEFICIENCY
     Dosage: 50 MG, TID
     Route: 048
  4. TRAMADOL. [Concomitant]
     Active Substance: TRAMADOL
     Indication: PRODUCT USED FOR UNKNOWN INDICATION
     Dosage: 50 MG, TID
  5. LEVOTHYROXIN [Concomitant]
     Active Substance: LEVOTHYROXINE
     Indication: PRODUCT USED FOR UNKNOWN INDICATION
     Dosage: 150 ?G, QD
  6. ALPRAZOLAM. [Concomitant]
     Active Substance: ALPRAZOLAM
     Indication: PRODUCT USED FOR UNKNOWN INDICATION
     Dosage: 0.25 MG, BEDTIME
     Route: 048
  7. BENICAR HCT [Suspect]
     Active Substance: HYDROCHLOROTHIAZIDE\OLMESARTAN MEDOXOMIL
     Indication: HYPERTENSION
     Dosage: 40MG/25MG , QD
     Route: 048
     Dates: start: 20060707
  8. BENICAR [Suspect]
     Active Substance: OLMESARTAN MEDOXOMIL
     Indication: PRODUCT USED FOR UNKNOWN INDICATION
     Dosage: 20 MG, QD

REACTIONS (7)
  - Cholelithiasis [Unknown]
  - Gastrooesophageal reflux disease [Not Recovered/Not Resolved]
  - Acute kidney injury [Not Recovered/Not Resolved]
  - Hypotension [Recovered/Resolved]
  - Hepatic steatosis [Unknown]
  - Constipation [Unknown]
  - Malabsorption [Not Recovered/Not Resolved]

NARRATIVE: CASE EVENT DATE: 2013
